FAERS Safety Report 8190961-X (Version None)
Quarter: 2012Q1

REPORT INFORMATION
  Report Type: 
  Country: None (occurrence: None)
  Receive Date: 20120307
  Receipt Date: 20120228
  Transmission Date: 20120608
  Serious: Yes (Death)
  Sender: FDA-Public Use
  Company Number: US-ACTELION-A-NJ2011-48950

PATIENT

DRUGS (2)
  1. REVATIO [Concomitant]
  2. TRACLEER [Suspect]
     Indication: PULMONARY ARTERIAL HYPERTENSION
     Dosage: UNK
     Route: 048
     Dates: start: 20100415, end: 20120204

REACTIONS (7)
  - DIZZINESS [None]
  - DYSPNOEA [None]
  - ABNORMAL LOSS OF WEIGHT [None]
  - PULMONARY HYPERTENSION [None]
  - PULMONARY OEDEMA [None]
  - FEELING ABNORMAL [None]
  - DIZZINESS EXERTIONAL [None]
